FAERS Safety Report 16562009 (Version 5)
Quarter: 2021Q4

REPORT INFORMATION
  Report Type: Spontaneous
  Country: FR (occurrence: FR)
  Receive Date: 20190711
  Receipt Date: 20211111
  Transmission Date: 20220303
  Serious: Yes (Hospitalization, Disabling, Other)
  Sender: FDA-Public Use
  Company Number: FR-SAKK-2019SA019845AA

PATIENT
  Age: 81 Year
  Sex: Female
  Weight: 48 kg

DRUGS (43)
  1. AMIODARONE [Suspect]
     Active Substance: AMIODARONE
     Indication: Atrial fibrillation
     Dosage: (1 UNIT ON MORNING EXCEPT SUNDAY AND SATURDAY)/START:15-MAY-2017
     Route: 065
     Dates: end: 20180220
  2. AMIODARONE [Suspect]
     Active Substance: AMIODARONE
     Dosage: START DATE: AUG-2017
     Route: 065
  3. AMIODARONE [Suspect]
     Active Substance: AMIODARONE
     Dosage: 1 UNIT ON MORNING EXCEPT SUNDAY  AND SATURDAY/START DATE:JAN-2018
     Route: 065
  4. CORDARONE [Suspect]
     Active Substance: AMIODARONE HYDROCHLORIDE
     Indication: Atrial fibrillation
     Dosage: 2 DF, QD, 2 UNITS ON MORNING/ START DATE:15-MAY-2017
     Route: 065
  5. CORDARONE [Suspect]
     Active Substance: AMIODARONE HYDROCHLORIDE
     Dosage: 1 UNIT ON MORNING EXCEPT SUNDAY/START:JUL-2017
     Route: 065
     Dates: end: 20170713
  6. CORDARONE [Suspect]
     Active Substance: AMIODARONE HYDROCHLORIDE
     Dosage: START DATE:10-AUG-2017
     Route: 065
     Dates: end: 201802
  7. CORDARONE [Suspect]
     Active Substance: AMIODARONE HYDROCHLORIDE
     Dosage: UNK
     Route: 065
  8. CORDARONE [Suspect]
     Active Substance: AMIODARONE HYDROCHLORIDE
     Dosage: 1 DF, QD, 1 UNIT ON MORNING
     Route: 065
  9. CORDARONE [Suspect]
     Active Substance: AMIODARONE HYDROCHLORIDE
     Dosage: UNK
     Route: 065
     Dates: end: 201802
  10. CORDARONE [Suspect]
     Active Substance: AMIODARONE HYDROCHLORIDE
     Dosage: START DATE:FEB-2018
     Route: 065
  11. ALDACTONE [Concomitant]
     Active Substance: SPIRONOLACTONE
     Indication: Cardiac failure
     Dosage: 0.5 DOSAGE FORM,QD(1/2 UNITS DAILY)/START DATE:03-AUG-2017
     Route: 065
  12. ALDACTONE [Concomitant]
     Active Substance: SPIRONOLACTONE
     Indication: Oedema
     Dosage: UNK
  13. CHOLECALCIFEROL [Concomitant]
     Active Substance: CHOLECALCIFEROL
     Dosage: START DATE:2018
     Route: 065
  14. POTASSIUM CHLORIDE [Concomitant]
     Active Substance: POTASSIUM CHLORIDE
     Dosage: 1 DF, TID, 1 UNIT 3 TIMES DAILY/START:JUL-2017
     Route: 065
     Dates: end: 201707
  15. POTASSIUM CHLORIDE [Concomitant]
     Active Substance: POTASSIUM CHLORIDE
     Dosage: 2 DF, TID, 2 UNITS 3 TIMES DAILY/START:03-AUG-2017
     Route: 065
  16. POTASSIUM CHLORIDE [Concomitant]
     Active Substance: POTASSIUM CHLORIDE
     Dosage: 1 DF, BID, 1 UNIT TWICE DAILY/START:JUL-2017
     Route: 065
  17. POTASSIUM CHLORIDE [Concomitant]
     Active Substance: POTASSIUM CHLORIDE
     Dosage: 3 DOSAGE FORM, QD
     Route: 065
  18. POTASSIUM CHLORIDE [Concomitant]
     Active Substance: POTASSIUM CHLORIDE
     Dosage: 3 DOSAGE FORM, QD, 1 IN MORNING, 1 IN AFTERNOON, 1 IN EVENING
     Route: 065
  19. DULOXETINE [Concomitant]
     Active Substance: DULOXETINE
     Dosage: 2 DF, QD, 2 UNITS DAILY/START DATE:03-AUG-2017
     Route: 065
  20. MOVICOL-HALF [Concomitant]
     Dosage: 1 DF, BID, 1 UNIT  TWICE DAILY/START DATE:JUN-2017
     Route: 065
  21. MOVICOL-HALF [Concomitant]
     Dosage: 2 DOSAGE FORM, QD (1 IN THE MORNING, 1 IN THE EVENING)
  22. DEBRIDAT                           /00465201/ [Concomitant]
     Dosage: UNK
     Route: 065
  23. ZOLPIDEM [Concomitant]
     Active Substance: ZOLPIDEM TARTRATE
     Dosage: START DATE:2018
     Route: 065
  24. CYMBALTA [Concomitant]
     Active Substance: DULOXETINE HYDROCHLORIDE
     Dosage: UNK, 1 IN THE EVENING
     Route: 065
  25. ZOLPIDEM TARTRATE [Concomitant]
     Active Substance: ZOLPIDEM TARTRATE
     Dosage: 1 DF, QD, 1 UNIT DAILY
     Route: 065
  26. ZOLPIDEM TARTRATE [Concomitant]
     Active Substance: ZOLPIDEM TARTRATE
     Dosage: 10 MILLIGRAM, QD, (10 MG, QD 1 UNIT ON EVENING)
     Route: 065
  27. ZOLPIDEM TARTRATE [Concomitant]
     Active Substance: ZOLPIDEM TARTRATE
     Dosage: UNK, 1/2 AT BEDTIME
  28. FUROSEMIDE [Concomitant]
     Active Substance: FUROSEMIDE
     Dosage: 1 DF, QD, 1 UNIT ON MORNING/START DATE:15-MAY-2017
     Route: 065
     Dates: end: 201707
  29. FUROSEMIDE [Concomitant]
     Active Substance: FUROSEMIDE
     Dosage: 1/4UNIT ON MORNING, (0.25 DOSAGE FORM, QD)/START DATE:JUL-2017
     Route: 065
  30. FUROSEMIDE [Concomitant]
     Active Substance: FUROSEMIDE
     Dosage: 1 DF, QD, 1 UNIT ON MORNING/START DATE:2018
     Route: 065
  31. POLYETHYLENE GLYCOL 4000 [Concomitant]
     Active Substance: POLYETHYLENE GLYCOL 4000
     Dosage: 1 DF, QD, 1UNIT DAILY/ START DATE:03-AUG-2017
     Route: 065
  32. ATENOLOL [Concomitant]
     Active Substance: ATENOLOL
     Dosage: 1 DF, QD, 1 UNIT DAILY/ START DATE:JUN-2017
     Route: 065
  33. ATENOLOL [Concomitant]
     Active Substance: ATENOLOL
     Dosage: UNK, 1 IN THE MORNING
     Route: 065
  34. ATENOLOL [Concomitant]
     Active Substance: ATENOLOL
     Dosage: 0.5 DF, QD (1/2 UNIT DAILY ON MORNING), (1/2UNIT DAILY)/03-AUG-2017
     Route: 065
  35. ATENOLOL [Concomitant]
     Active Substance: ATENOLOL
     Dosage: UNK (1 / 2UNIT DAILY) (START 03-AUG-2018)
     Route: 065
  36. BENSERAZIDE HYDROCHLORIDE\LEVODOPA [Concomitant]
     Active Substance: BENSERAZIDE HYDROCHLORIDE\LEVODOPA
     Dosage: 3 DF, QD, 3 UNITS DAILY (START: -2018)
     Route: 065
  37. LANSOPRAZOLE [Concomitant]
     Active Substance: LANSOPRAZOLE
     Dosage: 1 DF, QD, 1UNIT DAILY/ START DATE:2018
     Route: 065
  38. XARELTO [Concomitant]
     Active Substance: RIVAROXABAN
     Dosage: 1 DF, QD, 1 UNIT ON EVENING/START DATE:15-MAY-2017
     Route: 065
     Dates: end: 201707
  39. XARELTO [Concomitant]
     Active Substance: RIVAROXABAN
     Dosage: 1 DF, QD, 1 UNIT ON EVENING/ START DATE:JUL-2017
     Route: 065
  40. LEVOTHYROXINE [Concomitant]
     Active Substance: LEVOTHYROXINE
     Dosage: 1 DF, QD, 1 UNIT DAILY ON MORNING/START DATE:2003
     Route: 065
  41. PREDNISONE [Concomitant]
     Active Substance: PREDNISONE
     Dosage: 40 MILLIGRAM, QD/ START DATE:23-JAN-2018
  42. FLAGYL                             /00012501/ [Concomitant]
     Dosage: UNK
  43. ROCEPHIN [Concomitant]
     Active Substance: CEFTRIAXONE SODIUM
     Dosage: UNK

REACTIONS (36)
  - Pneumonia [Unknown]
  - Papilloedema [Not Recovered/Not Resolved]
  - Hypercapnia [Unknown]
  - Condition aggravated [Unknown]
  - Depression [Unknown]
  - Eye haemorrhage [Unknown]
  - Aortic valve calcification [Unknown]
  - Cerebellar syndrome [Unknown]
  - Retinal vein thrombosis [Unknown]
  - Anaemia [Unknown]
  - Diplopia [Unknown]
  - Arterial disorder [Unknown]
  - Extrapyramidal disorder [Unknown]
  - Optic atrophy [Unknown]
  - Ophthalmic vein thrombosis [Unknown]
  - Neuropathy peripheral [Unknown]
  - Chest pain [Unknown]
  - Atrial fibrillation [Unknown]
  - Cardiac failure [Recovering/Resolving]
  - Parkinsonism [Unknown]
  - Optic neuropathy [Unknown]
  - Visual acuity reduced [Recovering/Resolving]
  - Dyspnoea [Recovered/Resolved]
  - Pleural effusion [Recovering/Resolving]
  - Tremor [Unknown]
  - Optic neuritis [Not Recovered/Not Resolved]
  - Hypoxia [Recovering/Resolving]
  - Cardiac valve disease [Recovering/Resolving]
  - Oedema peripheral [Recovered/Resolved]
  - Cough [Recovering/Resolving]
  - Crepitations [Recovering/Resolving]
  - Cardiac murmur [Recovered/Resolved]
  - Aortic valve disease [Unknown]
  - Hypoventilation [Recovering/Resolving]
  - Hypercapnia [Recovering/Resolving]
  - Dyspnoea exertional [Unknown]

NARRATIVE: CASE EVENT DATE: 20170501
